FAERS Safety Report 8960629 (Version 1)
Quarter: 2012Q4

REPORT INFORMATION
  Report Type: 
  Country: ES (occurrence: ES)
  Receive Date: 20121212
  Receipt Date: 20121212
  Transmission Date: 20130627
  Serious: Yes (Death, Hospitalization)
  Sender: FDA-Public Use
  Company Number: ES-ROXANE LABORATORIES, INC.-2012-BI-00346GD

PATIENT
  Age: 78 Year
  Sex: Female

DRUGS (3)
  1. PREDNISONE [Suspect]
     Indication: RHEUMATOID ARTHRITIS
  2. ETANERCEPT [Suspect]
     Indication: RHEUMATOID ARTHRITIS
     Dosage: 7.1429 mg
     Dates: start: 201107
  3. METHOTREXATE [Suspect]
     Indication: RHEUMATOID ARTHRITIS
     Dosage: 2.8571 mg

REACTIONS (6)
  - Multi-organ failure [Fatal]
  - Septic shock [Fatal]
  - Pancytopenia [Unknown]
  - Pneumonia [Unknown]
  - Acute respiratory distress syndrome [Unknown]
  - Asthenia [Unknown]
